FAERS Safety Report 15015193 (Version 1)
Quarter: 2018Q2

REPORT INFORMATION
  Report Type: Spontaneous
  Country: AU (occurrence: AU)
  Receive Date: 20180615
  Receipt Date: 20180615
  Transmission Date: 20180711
  Serious: Yes (Other)
  Sender: FDA-Public Use
  Company Number: AU-TEVA-2018-AU-904772

PATIENT
  Age: 80 Year
  Sex: Female

DRUGS (9)
  1. DENOSUMAB [Concomitant]
     Active Substance: DENOSUMAB
  2. CITRACAL [Concomitant]
     Active Substance: CALCIUM CITRATE
  3. MELOXICAM. [Concomitant]
     Active Substance: MELOXICAM
  4. REFRESH TEARS PLUS EYE DROPS [Concomitant]
  5. CANDESARTAN. [Concomitant]
     Active Substance: CANDESARTAN
  6. PANADOL [Concomitant]
     Active Substance: ACETAMINOPHEN
  7. BRIMONIDINE [Concomitant]
     Active Substance: BRIMONIDINE TARTRATE
  8. RISEDRONIC ACID [Suspect]
     Active Substance: RISEDRONIC ACID
     Route: 065
  9. VITAMIN D [Concomitant]
     Active Substance: CHOLECALCIFEROL

REACTIONS (1)
  - Femur fracture [Unknown]
